FAERS Safety Report 7461440-X (Version None)
Quarter: 2011Q2

REPORT INFORMATION
  Report Type: 
  Country: None (occurrence: None)
  Receive Date: 20110506
  Receipt Date: 20110502
  Transmission Date: 20111010
  Serious: Yes (Disabling, Other)
  Sender: FDA-Public Use
  Company Number: US-PFIZER INC-2011036271

PATIENT
  Sex: Female

DRUGS (2)
  1. INTERFERON BETA [Concomitant]
     Indication: MULTIPLE SCLEROSIS
     Dosage: UNK
     Dates: start: 20060101
  2. CHANTIX [Suspect]
     Indication: SMOKING CESSATION THERAPY
     Dosage: 0.05 MG AND 1 MG
     Dates: start: 20080229, end: 20080331

REACTIONS (7)
  - MENTAL DISORDER [None]
  - DEPRESSION [None]
  - AGGRESSION [None]
  - MOOD SWINGS [None]
  - ABNORMAL DREAMS [None]
  - SUICIDAL IDEATION [None]
  - ANXIETY [None]
